FAERS Safety Report 6988426-3 (Version None)
Quarter: 2010Q3

REPORT INFORMATION
  Report Type: 
  Country: None (occurrence: None)
  Receive Date: 20100916
  Receipt Date: 20100816
  Transmission Date: 20110219
  Serious: No
  Sender: FDA-Public Use
  Company Number: US-BAYER-201030878NA

PATIENT
  Age: 31 Year
  Sex: Female
  Weight: 73 kg

DRUGS (2)
  1. ULTRAVIST 300 [Suspect]
     Indication: PULMONARY EMBOLISM
     Dosage: AS USED: 125 ML  UNIT DOSE: 100 ML
     Route: 042
     Dates: start: 20100813, end: 20100813
  2. ULTRAVIST 300 [Suspect]
     Dosage: AS USED: 25 ML  UNIT DOSE: 100 ML
     Route: 042
     Dates: start: 20100813, end: 20100813

REACTIONS (3)
  - NASAL CONGESTION [None]
  - NAUSEA [None]
  - URTICARIA [None]
